FAERS Safety Report 11605331 (Version 3)
Quarter: 2016Q1

REPORT INFORMATION
  Report Type: Report from Study
  Country: TW (occurrence: TW)
  Receive Date: 20151007
  Receipt Date: 20160224
  Transmission Date: 20160525
  Serious: No
  Sender: FDA-Public Use
  Company Number: PHHY2015TW120823

PATIENT
  Age: 60 Year
  Sex: Male

DRUGS (13)
  1. MEDICON (DEXTROMETHORPHAN HYDROBROMIDE) [Concomitant]
     Active Substance: DEXTROMETHORPHAN HYDROBROMIDE
     Indication: PRODUCT USED FOR UNKNOWN INDICATION
     Dosage: 20 MG, UNK
     Route: 048
     Dates: start: 20150609, end: 20150615
  2. CEFADROXIL. [Concomitant]
     Active Substance: CEFADROXIL
     Indication: PRODUCT USED FOR UNKNOWN INDICATION
     Dosage: 500 MG, UNK
     Route: 048
     Dates: start: 20150114, end: 20150116
  3. OFLOXACIN. [Concomitant]
     Active Substance: OFLOXACIN
     Indication: PRODUCT USED FOR UNKNOWN INDICATION
     Dosage: 400 MG, UNK
     Route: 048
     Dates: start: 20150310, end: 20150314
  4. OFLOXACIN. [Concomitant]
     Active Substance: OFLOXACIN
     Dosage: 400 MG, UNK
     Route: 048
     Dates: start: 20150317, end: 20150321
  5. OFLOXACIN. [Concomitant]
     Active Substance: OFLOXACIN
     Dosage: 400 MG, UNK
     Route: 048
     Dates: start: 20150331, end: 20150402
  6. FERROUS GLUCO-B [Concomitant]
     Indication: PRODUCT USED FOR UNKNOWN INDICATION
     Dosage: 1 DF, UNK
     Route: 048
     Dates: start: 20140429
  7. TAMSULOSIN [Concomitant]
     Active Substance: TAMSULOSIN
     Indication: BENIGN PROSTATIC HYPERPLASIA
     Dosage: 0.2 MG, UNK
     Route: 048
     Dates: end: 20140801
  8. ONCOTICE [Concomitant]
     Active Substance: BACILLUS CALMETTE-GUERIN SUBSTRAIN TICE LIVE ANTIGEN
     Indication: BLADDER CANCER
     Dosage: 50 MG, UNK
     Route: 065
     Dates: start: 20150224, end: 20150224
  9. DOMPERIDONE [Concomitant]
     Active Substance: DOMPERIDONE
     Indication: NAUSEA
     Dosage: 10 MG, UNK
     Route: 048
     Dates: start: 20130521, end: 20130709
  10. OFLOXACIN. [Concomitant]
     Active Substance: OFLOXACIN
     Dosage: 400 MG, UNK
     Route: 048
     Dates: start: 20150324, end: 20150326
  11. MAGNESIUM OXIDE. [Concomitant]
     Active Substance: MAGNESIUM OXIDE
     Indication: PRODUCT USED FOR UNKNOWN INDICATION
     Dosage: 2 DF, UNK
     Route: 048
     Dates: start: 20140916, end: 20141229
  12. TASIGNA [Suspect]
     Active Substance: NILOTINIB
     Indication: CHRONIC MYELOID LEUKAEMIA
     Dosage: 600 OT, UNK
     Route: 048
     Dates: start: 20120404
  13. OFLOXACIN. [Concomitant]
     Active Substance: OFLOXACIN
     Dosage: 400 MG, UNK
     Route: 048
     Dates: start: 20150407, end: 20150411

REACTIONS (1)
  - Blood bilirubin increased [Not Recovered/Not Resolved]

NARRATIVE: CASE EVENT DATE: 20120404
